FAERS Safety Report 9470698 (Version 1)
Quarter: 2013Q3

REPORT INFORMATION
  Report Type: Spontaneous
  Country: GB (occurrence: None)
  Receive Date: 20130815
  Receipt Date: 20130815
  Transmission Date: 20140515
  Serious: Yes (Life-Threatening)
  Sender: FDA-Public Use
  Company Number: AUR-APL-2013-06542

PATIENT
  Age: 52 Year
  Sex: Male
  Weight: 113 kg

DRUGS (14)
  1. TERBINAFINE [Suspect]
     Indication: PRODUCT USED FOR UNKNOWN INDICATION
     Dates: start: 20130709
  2. AMOROLFINE (AMOROLFINE) [Concomitant]
  3. AMOXICILLIN (AMOXICILLIN) [Concomitant]
  4. ASPIRIN (ACETYLSALICYLIC ACID) [Concomitant]
  5. ATORVASTATIN (ATORVASTATIN) [Concomitant]
  6. BENDROFLUMETHIAZIDE (BENDROFLUMETHIAZIDE) [Concomitant]
  7. BISOPROLOL (BISOPROLOL) [Concomitant]
  8. CARVEDILOL (CARVEDILOL) [Concomitant]
  9. CITALOPRAM (CITALOPRAM) [Concomitant]
  10. DOXAZOSIN (DOXAZOSIN) [Concomitant]
  11. GLYCERYL TRINITRATE (GLYCERYL TRINITRATE) [Concomitant]
  12. MICONAZOLE (MICONAZOLE) [Concomitant]
  13. RAMIPRIL (RAMIPRIL) [Concomitant]
  14. TICAGRELOR (TICAGRELOR) [Concomitant]

REACTIONS (2)
  - Anaphylactic reaction [None]
  - Obstructive airways disorder [None]
